FAERS Safety Report 10513691 (Version 1)
Quarter: 2014Q4

REPORT INFORMATION
  Report Type: Spontaneous
  Country: US (occurrence: US)
  Receive Date: 20141013
  Receipt Date: 20141013
  Transmission Date: 20150528
  Serious: No
  Sender: FDA-Public Use
  Company Number: US-BAYER-2014-150835

PATIENT
  Age: 91 Year
  Sex: Male
  Weight: 66 kg

DRUGS (15)
  1. CALCIUM [Concomitant]
     Active Substance: CALCIUM
     Dosage: 600 MG, BID
  2. CARVEDILOL. [Suspect]
     Active Substance: CARVEDILOL
     Dosage: 6.25 MG, BID
  3. ASPIRIN. [Suspect]
     Active Substance: ASPIRIN
  4. FINASTERIDE. [Concomitant]
     Active Substance: FINASTERIDE
     Dosage: 5 MG
  5. ALEVE PM [Suspect]
     Active Substance: DIPHENHYDRAMINE HYDROCHLORIDE\NAPROXEN SODIUM
     Indication: BACK PAIN
     Dosage: 2 CAPLETS, PRN
     Route: 048
     Dates: start: 201410, end: 201410
  6. ALPRAZOLAM. [Suspect]
     Active Substance: ALPRAZOLAM
     Dosage: 5 MG
  7. TERAZOSIN [Suspect]
     Active Substance: TERAZOSIN\TERAZOSIN HYDROCHLORIDE
     Dosage: 1 MG
  8. 1-ALPHA-HYDROXYCHOLECALCIFEROL [Suspect]
     Active Substance: ALFACALCIDOL
     Dosage: 400 UNITS
  9. LOVASTATIN. [Suspect]
     Active Substance: LOVASTATIN
     Dosage: 10 MG, BID
  10. OMEPRAZOLE. [Concomitant]
     Active Substance: OMEPRAZOLE
     Dosage: 20 MG
  11. METHOCARBAMOL [METHOCARBAMOL] [Concomitant]
     Dosage: 750 MG
  12. TRAMADOL [Suspect]
     Active Substance: TRAMADOL
     Dosage: 100 MG, BID
  13. NIACIN. [Concomitant]
     Active Substance: NIACIN
     Dosage: 1500 MG
  14. MULTIVITAMIN [Concomitant]
     Active Substance: VITAMINS
     Dosage: TWICE DAILY
  15. RISEDRONATE SODIUM. [Concomitant]
     Active Substance: RISEDRONATE SODIUM
     Dosage: 35 MG ONCE WEEKLY

REACTIONS (2)
  - Drug ineffective [None]
  - Insomnia [Recovered/Resolved]

NARRATIVE: CASE EVENT DATE: 201410
